FAERS Safety Report 6554071-7 (Version None)
Quarter: 2010Q1

REPORT INFORMATION
  Report Type: 
  Country: None (occurrence: None)
  Receive Date: 20100127
  Receipt Date: 20100120
  Transmission Date: 20100710
  Serious: Yes (Hospitalization, Other)
  Sender: FDA-Public Use
  Company Number: US-GENENTECH-295736

PATIENT
  Sex: Female
  Weight: 78.458 kg

DRUGS (13)
  1. XOLAIR [Suspect]
     Indication: ASTHMA
     Dosage: 300 MG, Q2W
     Route: 030
     Dates: start: 20091104
  2. ARIMIDEX [Concomitant]
     Indication: DRUG USE FOR UNKNOWN INDICATION
  3. TRAZODONE [Concomitant]
     Indication: DRUG USE FOR UNKNOWN INDICATION
  4. LEVOTHYROXINE SODIUM [Concomitant]
     Indication: DRUG USE FOR UNKNOWN INDICATION
  5. SIMVASTATIN [Concomitant]
     Indication: DRUG USE FOR UNKNOWN INDICATION
  6. LORAZEPAM [Concomitant]
     Indication: DRUG USE FOR UNKNOWN INDICATION
  7. DESIPRAMINE [Concomitant]
     Indication: DRUG USE FOR UNKNOWN INDICATION
  8. TRAMADOL [Concomitant]
     Indication: DRUG USE FOR UNKNOWN INDICATION
  9. RANITIDINE [Concomitant]
     Indication: DRUG USE FOR UNKNOWN INDICATION
  10. SERTRALINE HCL [Concomitant]
     Indication: DRUG USE FOR UNKNOWN INDICATION
  11. FLOVENT [Concomitant]
     Indication: DRUG USE FOR UNKNOWN INDICATION
  12. ALBUTEROL [Concomitant]
     Indication: DRUG USE FOR UNKNOWN INDICATION
  13. GLIPIZIDE [Concomitant]
     Indication: DRUG USE FOR UNKNOWN INDICATION

REACTIONS (1)
  - CONVULSION [None]
